FAERS Safety Report 14965082 (Version 2)
Quarter: 2018Q2

REPORT INFORMATION
  Report Type: Spontaneous
  Country: US (occurrence: US)
  Receive Date: 20180601
  Receipt Date: 20180619
  Transmission Date: 20180711
  Serious: No
  Sender: FDA-Public Use
  Company Number: US-009507513-1805USA012548

PATIENT
  Age: 77 Year
  Sex: Female

DRUGS (3)
  1. SINEMET [Suspect]
     Active Substance: CARBIDOPA\LEVODOPA
     Dosage: 300 MG (100MG, 3 IN 1 DAY)
     Dates: end: 20180509
  2. NORTHERA [Suspect]
     Active Substance: DROXIDOPA
     Indication: ORTHOSTATIC HYPOTENSION
     Dosage: UNK
     Dates: start: 20180502
  3. NORTHERA [Suspect]
     Active Substance: DROXIDOPA
     Indication: PARKINSON^S DISEASE
     Dosage: 300 MG, DAILY
     Dates: start: 20180423, end: 20180523

REACTIONS (7)
  - Asthenia [Unknown]
  - Paraesthesia [Unknown]
  - Malaise [Unknown]
  - Drug tolerance [Unknown]
  - Musculoskeletal stiffness [Unknown]
  - Pain [Unknown]
  - Feeling abnormal [Unknown]

NARRATIVE: CASE EVENT DATE: 20180505
